FAERS Safety Report 4713194-5 (Version None)
Quarter: 2005Q3

REPORT INFORMATION
  Report Type: 
  Country: None (occurrence: None)
  Receive Date: 20050713
  Receipt Date: 20041209
  Transmission Date: 20060218
  Serious: Yes (Hospitalization)
  Sender: FDA-Public Use
  Company Number: US-MERCK-0412USA01160

PATIENT
  Age: 54 Year
  Sex: Male

DRUGS (5)
  1. VIOXX [Suspect]
     Route: 048
  2. ATENOLOL [Concomitant]
     Route: 048
  3. PRILOSEC [Concomitant]
     Route: 048
  4. ASPIRIN [Concomitant]
     Route: 065
  5. DIURETIC (UNSPECIFIED) [Concomitant]
     Route: 065

REACTIONS (2)
  - ANGINA UNSTABLE [None]
  - MYOCARDIAL INFARCTION [None]
